FAERS Safety Report 7524616-9 (Version None)
Quarter: 2011Q2

REPORT INFORMATION
  Report Type: 
  Country: None (occurrence: None)
  Receive Date: 20110606
  Receipt Date: 20110529
  Transmission Date: 20111010
  Serious: No
  Sender: FDA-Public Use
  Company Number: US-JNJFOC-20110600363

PATIENT
  Sex: Female

DRUGS (1)
  1. FENTANYL-100 [Suspect]
     Indication: PRODUCT USED FOR UNKNOWN INDICATION
     Route: 062
     Dates: end: 20110527

REACTIONS (4)
  - HOT FLUSH [None]
  - PAIN [None]
  - TREATMENT NONCOMPLIANCE [None]
  - NASOPHARYNGITIS [None]
